FAERS Safety Report 4977587-3 (Version None)
Quarter: 2006Q2

REPORT INFORMATION
  Report Type: 
  Country: None (occurrence: None)
  Receive Date: 20060420
  Receipt Date: 20060411
  Transmission Date: 20061013
  Serious: Yes (Hospitalization)
  Sender: FDA-Public Use
  Company Number: FR-JNJFOC-20060402769

PATIENT
  Age: 85 Year
  Sex: Female

DRUGS (4)
  1. HALDOL [Suspect]
     Indication: AGITATION
     Route: 048
  2. PRAZEPAM [Suspect]
     Indication: AGITATION
     Route: 048
  3. DIGOXIN [Concomitant]
  4. TRIATEC [Concomitant]

REACTIONS (3)
  - CONFUSIONAL STATE [None]
  - DEHYDRATION [None]
  - SOMNOLENCE [None]
